FAERS Safety Report 13164694 (Version 1)
Quarter: 2017Q1

REPORT INFORMATION
  Report Type: Spontaneous
  Country: SG (occurrence: SG)
  Receive Date: 20170130
  Receipt Date: 20170130
  Transmission Date: 20170428
  Serious: Yes (Other)
  Sender: FDA-Public Use
  Company Number: SG-MYLANLABS-2017M1005408

PATIENT

DRUGS (3)
  1. IMMUNOGLOBULIN (IVIG) [Suspect]
     Active Substance: HUMAN IMMUNOGLOBULIN G
     Indication: PRODUCT USED FOR UNKNOWN INDICATION
     Route: 042
  2. PREDNISOLONE. [Suspect]
     Active Substance: PREDNISOLONE
     Indication: THROMBOCYTOPENIA
     Dosage: 20MG; LATER, THE PREDNISOLONE DOSE WAS INCREASED
     Route: 065
  3. ASPIRIN                            /00002701/ [Suspect]
     Active Substance: ASPIRIN
     Indication: PRODUCT USED FOR UNKNOWN INDICATION
     Dosage: 100MG
     Route: 065

REACTIONS (4)
  - Exposure during pregnancy [Recovered/Resolved]
  - Pre-eclampsia [Unknown]
  - Abortion induced [Recovered/Resolved]
  - Oligohydramnios [Recovered/Resolved]
